FAERS Safety Report 20721075 (Version 1)
Quarter: 2022Q2

REPORT INFORMATION
  Report Type: Report from Study
  Country: US (occurrence: US)
  Receive Date: 20220418
  Receipt Date: 20220418
  Transmission Date: 20220721
  Serious: No
  Sender: FDA-Public Use
  Company Number: US-NOVARTISTESTPH-NVSC2022US085845

PATIENT
  Sex: Male

DRUGS (1)
  1. COSENTYX [Suspect]
     Active Substance: SECUKINUMAB
     Indication: Juvenile idiopathic arthritis
     Dosage: UNK UNK, QMO (ONCE WEEKLY FOR 5 WEEKS, THEN ONCE)
     Route: 058
     Dates: start: 20220407

REACTIONS (1)
  - Drug ineffective [Unknown]
